FAERS Safety Report 10231957 (Version 8)
Quarter: 2014Q3

REPORT INFORMATION
  Report Type: Report from Study
  Country: IT (occurrence: IT)
  Receive Date: 20140612
  Receipt Date: 20140825
  Transmission Date: 20150326
  Serious: Yes (Hospitalization)
  Sender: FDA-Public Use
  Company Number: IT-ROCHE-1416403

PATIENT
  Age: 73 Year
  Sex: Male
  Weight: 72 kg

DRUGS (12)
  1. OBINUTUZUMAB [Suspect]
     Active Substance: OBINUTUZUMAB
     Indication: CHRONIC LYMPHOCYTIC LEUKAEMIA
     Dosage: C1D1?LAST DOSE PRIOR TO ADVERSE EVENT 06/JUN/2014
     Route: 042
     Dates: start: 20140605
  2. OBINUTUZUMAB [Suspect]
     Active Substance: OBINUTUZUMAB
     Dosage: C1D2?LAST DOSE PRIOR TO ADVERSE EVENT 06/JUN/2014
     Route: 042
     Dates: start: 20140606, end: 20140612
  3. FINASTERIDE. [Concomitant]
     Active Substance: FINASTERIDE
     Route: 048
     Dates: start: 20100101
  4. ZANTAC [Concomitant]
     Active Substance: RANITIDINE HYDROCHLORIDE
     Route: 042
     Dates: start: 20140605, end: 20140606
  5. SOLDESAM [Concomitant]
     Active Substance: DEXAMETHASONE
     Route: 042
     Dates: start: 20140605, end: 20140606
  6. BENDAMUSTINE [Suspect]
     Active Substance: BENDAMUSTINE
     Indication: CHRONIC LYMPHOCYTIC LEUKAEMIA
     Dosage: 70 MG/M2?LAST DOSE PRIOR TO ADVERSE EVENT 06/JUN/2014
     Route: 042
     Dates: start: 20140605, end: 20140612
  7. TRANEX [Concomitant]
     Indication: PROPHYLAXIS
     Route: 048
     Dates: start: 20140712
  8. SOLU-CORTEF [Concomitant]
     Active Substance: HYDROCORTISONE SODIUM SUCCINATE
     Dosage: SINGLE DOSE GIVEN TWO TIMES ONCE ON 05/JUN/2014 AND ONCE ON 06/JUN/2014
     Route: 042
     Dates: start: 20140605, end: 20140606
  9. XATRAL [Concomitant]
     Active Substance: ALFUZOSIN
     Route: 048
     Dates: start: 20100101
  10. TRIATEC (ITALY) [Concomitant]
     Active Substance: RAMIPRIL
     Route: 048
     Dates: start: 20090101
  11. NORVASC [Concomitant]
     Active Substance: AMLODIPINE BESYLATE
     Route: 048
     Dates: start: 20090101
  12. TRIMETON (ITALY) [Concomitant]
     Route: 042
     Dates: start: 20140605, end: 20140606

REACTIONS (1)
  - Pancytopenia [Recovered/Resolved]

NARRATIVE: CASE EVENT DATE: 20140608
